FAERS Safety Report 16412778 (Version 1)
Quarter: 2019Q2

REPORT INFORMATION
  Report Type: Spontaneous
  Country: LV (occurrence: LV)
  Receive Date: 20190611
  Receipt Date: 20190611
  Transmission Date: 20190711
  Serious: Yes (Other)
  Sender: FDA-Public Use
  Company Number: LV-TEVA-2019-LV-1060847

PATIENT
  Age: 22 Year
  Sex: Female
  Weight: 61 kg

DRUGS (2)
  1. DOXY-M [Suspect]
     Active Substance: DOXYCYCLINE
     Indication: PNEUMONIA
     Dosage: 100 MILLIGRAM DAILY;
     Route: 048
     Dates: start: 20190419, end: 20190428
  2. CIPROFLOXACIN OLAINFARM 500 MG FILM-COATED TABLETS [Concomitant]
     Indication: PNEUMONIA
     Dosage: 500 MILLIGRAM DAILY;
     Route: 048
     Dates: start: 20190408, end: 20190417

REACTIONS (6)
  - Headache [Recovering/Resolving]
  - Suicidal ideation [Recovering/Resolving]
  - Anxiety [Recovering/Resolving]
  - Irritability [Recovering/Resolving]
  - Nausea [Recovering/Resolving]
  - Mood swings [Recovering/Resolving]

NARRATIVE: CASE EVENT DATE: 20190420
